FAERS Safety Report 12632900 (Version 1)
Quarter: 2016Q3

REPORT INFORMATION
  Report Type: Spontaneous
  Country: US (occurrence: None)
  Receive Date: 20160808
  Receipt Date: 20160808
  Transmission Date: 20161109
  Serious: Yes (Disabling)
  Sender: FDA-Public Use
  Company Number: None

PATIENT
  Age: 60 Year
  Sex: Female
  Weight: 54.43 kg

DRUGS (5)
  1. ZOLPIDEM [Suspect]
     Active Substance: ZOLPIDEM\ZOLPIDEM TARTRATE
     Indication: SLEEP DISORDER
     Route: 048
  2. TEMAZEPAM. [Concomitant]
     Active Substance: TEMAZEPAM
  3. CLONAZEPAM, 1 MG [Suspect]
     Active Substance: CLONAZEPAM
     Indication: ANXIETY
     Route: 048
  4. VITAMINS [Concomitant]
     Active Substance: VITAMINS
  5. SUPPLEMENTS [Concomitant]
     Active Substance: UNSPECIFIED INGREDIENT

REACTIONS (3)
  - Product quality issue [None]
  - Product formulation issue [None]
  - Abdominal pain upper [None]

NARRATIVE: CASE EVENT DATE: 20160304
